FAERS Safety Report 12509393 (Version 1)
Quarter: 2016Q2

REPORT INFORMATION
  Report Type: Spontaneous
  Country: SK (occurrence: SK)
  Receive Date: 20160629
  Receipt Date: 20160629
  Transmission Date: 20160815
  Serious: Yes (Other)
  Sender: FDA-Public Use
  Company Number: SK-AMGEN-SVKSP2016081416

PATIENT
  Age: 68 Year

DRUGS (4)
  1. 5-FU                               /00098801/ [Concomitant]
     Active Substance: FLUOROURACIL
     Indication: COLORECTAL CANCER METASTATIC
     Dosage: UNK
     Dates: start: 201507, end: 201601
  2. VECTIBIX [Suspect]
     Active Substance: PANITUMUMAB
     Indication: PRODUCT USED FOR UNKNOWN INDICATION
     Dosage: UNK UNK, UNK
     Route: 065
     Dates: start: 201507, end: 201601
  3. OXALIPLATINUM [Concomitant]
     Active Substance: OXALIPLATIN
     Indication: COLORECTAL CANCER METASTATIC
     Dosage: UNK
     Dates: start: 201507, end: 201601
  4. CALCIUM LEUCOVORIN [Concomitant]
     Active Substance: LEUCOVORIN CALCIUM
     Indication: COLORECTAL CANCER METASTATIC
     Dosage: UNK
     Dates: start: 201507, end: 201601

REACTIONS (7)
  - Embolism venous [Unknown]
  - Skin toxicity [Unknown]
  - Dermatitis acneiform [Unknown]
  - Biliary fistula [Unknown]
  - Pulmonary embolism [Unknown]
  - Abdominal infection [Unknown]
  - Hepatectomy [Unknown]

NARRATIVE: CASE EVENT DATE: 2015
